FAERS Safety Report 9580377 (Version 2)
Quarter: 2013Q4

REPORT INFORMATION
  Report Type: Not Available
  Country: DE (occurrence: DE)
  Receive Date: 20131002
  Receipt Date: 20131015
  Transmission Date: 20140711
  Serious: Yes (Other)
  Sender: FDA-Public Use
  Company Number: DE-ASTELLAS-2013EU008333

PATIENT
  Age: 65 Year
  Sex: Male
  Weight: 95 kg

DRUGS (6)
  1. XTANDI [Suspect]
     Indication: PROSTATE CANCER
     Dosage: 160 MG, UNKNOWN/D
     Route: 048
     Dates: start: 20130905, end: 20130923
  2. ELIGARD [Concomitant]
     Dosage: UNK
     Route: 065
  3. SIMVASTATIN [Concomitant]
     Dosage: UNK
     Route: 065
  4. MORPHIN                            /00036303/ [Concomitant]
     Dosage: UNK
     Route: 065
  5. TAMSULOSIN [Concomitant]
     Dosage: UNK
     Route: 065
  6. PREDNISONE [Concomitant]
     Dosage: UNK
     Route: 065

REACTIONS (6)
  - Confusional state [Recovering/Resolving]
  - Hallucination [Recovering/Resolving]
  - Psychotic disorder [Recovering/Resolving]
  - Muscle twitching [Recovering/Resolving]
  - Illusion [Recovering/Resolving]
  - Prostatic specific antigen increased [Unknown]
